FAERS Safety Report 4976664-0 (Version None)
Quarter: 2006Q2

REPORT INFORMATION
  Report Type: 
  Country: None (occurrence: None)
  Receive Date: 20060419
  Receipt Date: 20051207
  Transmission Date: 20061013
  Serious: Yes (Hospitalization)
  Sender: FDA-Public Use
  Company Number: US-MERCK-0512USA01313

PATIENT
  Age: 56 Year
  Sex: Female
  Weight: 82 kg

DRUGS (4)
  1. VIOXX [Suspect]
     Indication: ARTHRITIS
     Route: 048
     Dates: start: 20020501, end: 20020526
  2. GLUCOPHAGE [Concomitant]
     Route: 065
  3. DIABETA [Concomitant]
     Route: 065
  4. ZESTRIL [Concomitant]
     Route: 065

REACTIONS (12)
  - ANAEMIA [None]
  - CORONARY ARTERY DISEASE [None]
  - CORONARY ARTERY RESTENOSIS [None]
  - DIVERTICULUM INTESTINAL [None]
  - GASTRIC ULCER [None]
  - HAEMORRHOIDS [None]
  - HYPERLIPIDAEMIA [None]
  - MENORRHAGIA [None]
  - MYOCARDIAL INFARCTION [None]
  - RECTAL HAEMORRHAGE [None]
  - REFRACTORY ANAEMIA [None]
  - UTERINE HAEMORRHAGE [None]
